FAERS Safety Report 5660423-X (Version None)
Quarter: 2008Q1

REPORT INFORMATION
  Report Type: 
  Country: None (occurrence: None)
  Receive Date: 20080306
  Receipt Date: 20080225
  Transmission Date: 20080703
  Serious: Yes (Other)
  Sender: FDA-Public Use
  Company Number: 2008AP000508

PATIENT
  Age: 60 Year
  Sex: Male

DRUGS (2)
  1. PRAVASTATIN [Suspect]
     Indication: HYPERCHOLESTEROLAEMIA
     Dosage: 40 MG; QD, 40 MG; QD
     Dates: start: 20050901, end: 20061001
  2. PRAVASTATIN [Suspect]
     Indication: HYPERCHOLESTEROLAEMIA
     Dosage: 40 MG; QD, 40 MG; QD
     Dates: start: 20050901, end: 20061001

REACTIONS (4)
  - BLOOD LACTATE DEHYDROGENASE INCREASED [None]
  - LYMPHOCYTE PERCENTAGE INCREASED [None]
  - NEUTROPHIL PERCENTAGE DECREASED [None]
  - PLEURAL EFFUSION [None]
